FAERS Safety Report 8602036 (Version 3)
Quarter: 2013Q3

REPORT INFORMATION
  Report Type: Spontaneous
  Country: US (occurrence: US)
  Receive Date: 20120607
  Receipt Date: 20130925
  Transmission Date: 20140515
  Serious: Yes (Hospitalization, Other)
  Sender: FDA-Public Use
  Company Number: US-ASTRAZENECA-2012SE36175

PATIENT
  Age: 15727 Day
  Sex: Female
  Weight: 104.3 kg

DRUGS (24)
  1. NEXIUM [Suspect]
     Indication: GASTROOESOPHAGEAL REFLUX DISEASE
     Dosage: TWICE DAILY
     Route: 048
     Dates: start: 2001, end: 2008
  2. NEXIUM [Suspect]
     Indication: BARRETT^S OESOPHAGUS
     Dosage: TWICE DAILY
     Route: 048
     Dates: start: 2001, end: 2008
  3. PRILOSEC OTC [Suspect]
     Indication: GASTROOESOPHAGEAL REFLUX DISEASE
     Route: 048
     Dates: start: 2001
  4. PRILOSEC OTC [Suspect]
     Indication: BARRETT^S OESOPHAGUS
     Route: 048
     Dates: start: 2001
  5. PRILOSEC OTC [Suspect]
     Indication: GASTROOESOPHAGEAL REFLUX DISEASE
     Route: 048
     Dates: start: 20060209
  6. PRILOSEC OTC [Suspect]
     Indication: BARRETT^S OESOPHAGUS
     Route: 048
     Dates: start: 20060209
  7. RANITIDINE [Concomitant]
     Indication: GASTROOESOPHAGEAL REFLUX DISEASE
     Dates: start: 200109
  8. RANITIDINE [Concomitant]
     Indication: BARRETT^S OESOPHAGUS
     Dates: start: 200109
  9. ACIPHEX [Concomitant]
     Indication: GASTROOESOPHAGEAL REFLUX DISEASE
     Dates: start: 2001
  10. ACIPHEX [Concomitant]
     Indication: BARRETT^S OESOPHAGUS
     Dates: start: 2001
  11. PROTONIX [Concomitant]
     Indication: GASTROOESOPHAGEAL REFLUX DISEASE
     Dates: start: 2001
  12. PROTONIX [Concomitant]
     Indication: BARRETT^S OESOPHAGUS
     Dates: start: 2001
  13. PROTONIX [Concomitant]
     Indication: GASTROOESOPHAGEAL REFLUX DISEASE
     Dates: start: 20021220
  14. PROTONIX [Concomitant]
     Indication: BARRETT^S OESOPHAGUS
     Dates: start: 20021220
  15. MULTIVITAMIN [Concomitant]
     Indication: GENERAL PHYSICAL HEALTH DETERIORATION
  16. VITAMIN D [Concomitant]
     Indication: VITAMIN D DEFICIENCY
  17. FISH OIL [Concomitant]
  18. FLAXSEED OIL [Concomitant]
  19. CHROMIUM [Concomitant]
  20. GINKGO [Concomitant]
     Indication: GENERAL PHYSICAL HEALTH DETERIORATION
  21. ALLEGRA [Concomitant]
  22. ALLEGRA [Concomitant]
  23. VITAMIN E [Concomitant]
  24. FEXOFENADINE HCL [Concomitant]

REACTIONS (9)
  - Gallbladder disorder [Unknown]
  - Cervical vertebral fracture [Unknown]
  - Osteoporosis [Unknown]
  - Spinal compression fracture [Unknown]
  - Cyst [Unknown]
  - Cystitis interstitial [Unknown]
  - Type 2 diabetes mellitus [Unknown]
  - Vitamin D deficiency [Unknown]
  - Intervertebral disc protrusion [Unknown]
